FAERS Safety Report 23159882 (Version 1)
Quarter: 2023Q4

REPORT INFORMATION
  Report Type: Spontaneous
  Country: DE (occurrence: DE)
  Receive Date: 20231108
  Receipt Date: 20231108
  Transmission Date: 20240110
  Serious: Yes (Other)
  Sender: FDA-Public Use
  Company Number: DE-EMBRYOTOX-202301466

PATIENT
  Age: 1 Day
  Sex: Male
  Weight: 2.53 kg

DRUGS (7)
  1. FLUOXETINE HYDROCHLORIDE [Suspect]
     Active Substance: FLUOXETINE HYDROCHLORIDE
     Indication: Depression
     Dosage: 40-60 MG/D UNTIL GW 8
     Route: 064
  2. FLUOXETINE HYDROCHLORIDE [Suspect]
     Active Substance: FLUOXETINE HYDROCHLORIDE
     Dosage: 40-60 MG/D FROM GW 18 ONWARDS
     Route: 064
  3. IBUPROFEN [Concomitant]
     Active Substance: IBUPROFEN
     Indication: Gingivitis
     Dosage: 800 MG, DAILY DURING TRIMESTER 1 (9. - 10. GESTATIONAL WEEK)
     Route: 064
  4. IBUPROFEN [Concomitant]
     Active Substance: IBUPROFEN
     Indication: Pain
     Dosage: 400-800 MG/D ON DEMAND DURING TRIMESTRE 1 (9. - 10. GESTATIONAL WEEK)
     Route: 064
  5. HERBALS [Concomitant]
     Active Substance: HERBALS
     Indication: Rhinitis
     Dosage: 1-2 CAPSULES/D, GW 9-12
     Route: 064
  6. HERBALS [Concomitant]
     Active Substance: HERBALS
     Dosage: 1-2 CAPSULES/D, GW 16/17
     Route: 064
     Dates: start: 20230217
  7. ELEVIT [MINERALS NOS;VITAMINS NOS] [Concomitant]
     Indication: Prophylaxis of neural tube defect

REACTIONS (2)
  - Small for dates baby [Recovered/Resolved]
  - Foetal exposure during pregnancy [Unknown]

NARRATIVE: CASE EVENT DATE: 20230701
